FAERS Safety Report 9541130 (Version 2)
Quarter: 2013Q4

REPORT INFORMATION
  Report Type: Spontaneous
  Country: US (occurrence: US)
  Receive Date: 20130923
  Receipt Date: 20131018
  Transmission Date: 20140711
  Serious: Yes (Hospitalization)
  Sender: FDA-Public Use
  Company Number: US-BIOGENIDEC-2013BI089948

PATIENT
  Age: 63 Year
  Sex: Female

DRUGS (8)
  1. AVONEX [Suspect]
     Indication: MULTIPLE SCLEROSIS
     Route: 030
     Dates: start: 20010309, end: 2003
  2. AVONEX [Suspect]
     Indication: MULTIPLE SCLEROSIS
     Route: 030
     Dates: start: 2003, end: 20130110
  3. AVONEX [Suspect]
     Indication: MULTIPLE SCLEROSIS
     Route: 030
     Dates: start: 2013
  4. CLOBETASOL [Concomitant]
     Indication: PSORIASIS
     Route: 061
  5. BACLOFEN [Concomitant]
     Indication: RESTLESS LEGS SYNDROME
  6. NEURONTIN [Concomitant]
     Indication: RESTLESS LEGS SYNDROME
  7. REQUIP [Concomitant]
     Indication: RESTLESS LEGS SYNDROME
  8. SINEMET [Concomitant]
     Indication: RESTLESS LEGS SYNDROME

REACTIONS (2)
  - Joint destruction [Recovered/Resolved]
  - Device dislocation [Recovered/Resolved]
